FAERS Safety Report 9401264 (Version 1)
Quarter: 2013Q3

REPORT INFORMATION
  Report Type: Spontaneous
  Country: US (occurrence: US)
  Receive Date: 20130715
  Receipt Date: 20130715
  Transmission Date: 20140515
  Serious: Yes (Other)
  Sender: FDA-Public Use
  Company Number: US-TEVA-419150USA

PATIENT
  Age: 28 Year
  Sex: Female
  Weight: 88.53 kg

DRUGS (2)
  1. PLAN B ONE-STEP [Suspect]
     Indication: POST COITAL CONTRACEPTION
     Dosage: 1.5 MILLIGRAM DAILY;
     Route: 048
     Dates: start: 20130621, end: 20130621
  2. WELLBUTRIN [Concomitant]
     Indication: DEPRESSION
     Dates: start: 201305, end: 20130710

REACTIONS (2)
  - Pregnancy after post coital contraception [Unknown]
  - Drug ineffective [Unknown]
